FAERS Safety Report 9311215 (Version 1)
Quarter: 2013Q1

REPORT INFORMATION
  Report Type: Spontaneous
  Country: US (occurrence: None)
  Receive Date: 20130228
  Receipt Date: 20130228
  Transmission Date: 20140127
  Serious: Yes (Other)
  Sender: FDA-Public Use
  Company Number: JPI-P-029788

PATIENT
  Age: 60 Year
  Sex: Female
  Weight: 48.08 kg

DRUGS (1)
  1. XYREM (500 MILLIGRAM/MILLITIERS, SOLUTION) (SODIUM OXYBATE) [Suspect]
     Indication: FIBROMYALGIA
     Dosage: 4.5 GM (2.25 GM, 2 IN 1) ORAL
     Route: 048
     Dates: start: 20060214, end: 2006

REACTIONS (2)
  - Drug dose omission [None]
  - Intraductal proliferative breast lesion [None]
